FAERS Safety Report 14769526 (Version 1)
Quarter: 2018Q2

REPORT INFORMATION
  Report Type: Spontaneous
  Country: DE (occurrence: DE)
  Receive Date: 20180417
  Receipt Date: 20180417
  Transmission Date: 20180711
  Serious: Yes (Other)
  Sender: FDA-Public Use
  Company Number: DE-TEVA-2018-DE-880796

PATIENT
  Age: 68 Year
  Sex: Female

DRUGS (1)
  1. CROMO-RATIOPHARM AUGENTROPFEN 20 MG/ML [Suspect]
     Active Substance: CROMOLYN SODIUM
     Indication: SEASONAL ALLERGY
     Route: 047
     Dates: start: 2018, end: 2018

REACTIONS (2)
  - Eye burns [Unknown]
  - Eye pruritus [Unknown]

NARRATIVE: CASE EVENT DATE: 2018
